FAERS Safety Report 5168241-6 (Version None)
Quarter: 2006Q4

REPORT INFORMATION
  Report Type: 
  Country: None (occurrence: None)
  Receive Date: 20061208
  Receipt Date: 20061201
  Transmission Date: 20070319
  Serious: Yes (Other)
  Sender: FDA-Public Use
  Company Number: FR-GLAXOSMITHKLINE-B0449554A

PATIENT
  Age: 91 Year
  Sex: Female
  Weight: 61 kg

DRUGS (1)
  1. AUGMENTIN '125' [Suspect]
     Indication: SEPTIC SHOCK
     Route: 065

REACTIONS (1)
  - HEPATITIS [None]
